FAERS Safety Report 8579057-2 (Version None)
Quarter: 2012Q3

REPORT INFORMATION
  Report Type: 
  Country: None (occurrence: None)
  Receive Date: 20120808
  Receipt Date: 20120802
  Transmission Date: 20120928
  Serious: Yes (Hospitalization)
  Sender: FDA-Public Use
  Company Number: US-ROCHE-1086286

PATIENT
  Sex: Female
  Weight: 71.278 kg

DRUGS (5)
  1. PACLITAXEL [Concomitant]
     Indication: BREAST CANCER METASTATIC
     Route: 042
  2. DECADRON PHOSPHATE [Concomitant]
     Indication: PRODUCT USED FOR UNKNOWN INDICATION
     Route: 048
     Dates: start: 20120701
  3. VITAMIN D [Concomitant]
     Indication: PRODUCT USED FOR UNKNOWN INDICATION
     Route: 048
     Dates: start: 20120101
  4. EPOGEN [Concomitant]
     Indication: RED BLOOD CELL COUNT DECREASED
     Dates: start: 20120101
  5. HERCEPTIN [Suspect]
     Indication: BREAST CANCER METASTATIC
     Route: 042
     Dates: start: 20040101

REACTIONS (7)
  - RED BLOOD CELL COUNT DECREASED [None]
  - WHITE BLOOD CELL COUNT DECREASED [None]
  - BLOOD MAGNESIUM DECREASED [None]
  - DYSPNOEA [None]
  - MUSCLE SPASMS [None]
  - HYPOAESTHESIA ORAL [None]
  - PAIN [None]
